FAERS Safety Report 17409629 (Version 1)
Quarter: 2020Q1

REPORT INFORMATION
  Report Type: Spontaneous
  Country: FR (occurrence: FR)
  Receive Date: 20200212
  Receipt Date: 20200212
  Transmission Date: 20200409
  Serious: Yes (Hospitalization)
  Sender: FDA-Public Use
  Company Number: FR-MYLANLABS-2020M1015392

PATIENT
  Age: 82 Year
  Sex: Female
  Weight: 63.5 kg

DRUGS (17)
  1. ATARAX [Concomitant]
     Active Substance: HYDROXYZINE HYDROCHLORIDE
     Dosage: 1 DOSAGE FORM
     Route: 048
  2. VENTOLINE                          /00139501/ [Concomitant]
     Active Substance: ALBUTEROL
     Dosage: 2 DOSAGE FORM
     Route: 055
  3. GYNO PEVARYL [Concomitant]
     Active Substance: ECONAZOLE NITRATE
     Dosage: NON RENSEIGNEE
     Route: 067
  4. TRIFLUCAN [Concomitant]
     Active Substance: FLUCONAZOLE
     Dosage: NON RENSEIGNEE
     Route: 048
  5. SPIRIVA [Concomitant]
     Active Substance: TIOTROPIUM BROMIDE MONOHYDRATE
     Dosage: 1 DOSAGE FORM, QD
     Route: 055
  6. FOSFOMYCINE [Concomitant]
     Active Substance: FOSFOMYCIN
     Dosage: NON RENSEIGNEE
     Route: 042
  7. ORBENINE [Concomitant]
     Active Substance: CLOXACILLIN SODIUM
     Dosage: NON RENSEIGNE
     Route: 042
  8. MIRTAZAPINE. [Concomitant]
     Active Substance: MIRTAZAPINE
     Dosage: 7.5 MILLIGRAM, QD
     Route: 048
  9. GENTAMICINE                        /00047101/ [Concomitant]
     Active Substance: GENTAMICIN
     Dosage: NON RENSEIGNEE
     Route: 042
  10. PANTOPRAZOLE [Suspect]
     Active Substance: PANTOPRAZOLE
     Indication: GASTRITIS
     Dosage: 20 MILLIGRAM, QD
     Route: 048
     Dates: end: 20190814
  11. PARACETAMOL [Concomitant]
     Active Substance: ACETAMINOPHEN
     Dosage: 3000 MILLIGRAM, QD
     Route: 048
  12. VERAPAMIL HYDROCHLOIRDE [Concomitant]
     Active Substance: VERAPAMIL HYDROCHLORIDE
     Dosage: 125 MILLIGRAM, QD
     Route: 048
  13. RELVAR ELLIPTA                     /08236201/ [Concomitant]
     Active Substance: FLUTICASONE FUROATE\VILANTEROL TRIFENATATE
     Dosage: 1 DOSAGE FORM, QD
     Route: 055
  14. CALCIDOSE                          /00944201/ [Concomitant]
     Active Substance: CALCIUM CARBONATE\CHOLECALCIFEROL
     Dosage: 1 DOSAGE FORM, Q3MONTHS
     Route: 048
  15. MONOPROST [Concomitant]
     Active Substance: LATANOPROST
     Dosage: 2 GTT DROPS, QD
     Route: 047
  16. CEFOXITIN [Concomitant]
     Active Substance: CEFOXITIN SODIUM
     Dosage: NON RENSEIGNEE
     Dates: start: 20190822, end: 20190902
  17. TAZOBACTAM [Concomitant]
     Active Substance: TAZOBACTAM
     Dosage: NON RENSEIGNEE
     Route: 042

REACTIONS (1)
  - Inappropriate antidiuretic hormone secretion [Recovered/Resolved]

NARRATIVE: CASE EVENT DATE: 20190814
